FAERS Safety Report 8044546-6 (Version None)
Quarter: 2012Q1

REPORT INFORMATION
  Report Type: 
  Country: None (occurrence: None)
  Receive Date: 20120113
  Receipt Date: 20120104
  Transmission Date: 20120608
  Serious: Yes (Hospitalization, Disabling)
  Sender: FDA-Public Use
  Company Number: MX-SANOFI-AVENTIS-2012SA000607

PATIENT
  Age: 39 Year
  Sex: Male
  Weight: 61 kg

DRUGS (4)
  1. PHENYTOIN SODIUM CAP [Concomitant]
     Route: 048
  2. ENOXAPARIN SODIUM [Suspect]
     Indication: THROMBOSIS PROPHYLAXIS
     Route: 058
     Dates: start: 20111012, end: 20111123
  3. AMIODARONE HCL [Concomitant]
     Route: 048
  4. DIGOXIN [Concomitant]
     Route: 048

REACTIONS (1)
  - CEREBROVASCULAR ACCIDENT [None]
